FAERS Safety Report 19200685 (Version 1)
Quarter: 2021Q2

REPORT INFORMATION
  Report Type: Spontaneous
  Country: US (occurrence: US)
  Receive Date: 20210430
  Receipt Date: 20210430
  Transmission Date: 20210717
  Serious: Yes (Death, Other)
  Sender: FDA-Public Use
  Company Number: US-SA-2021SA142549

PATIENT
  Age: 58 Year
  Sex: Male

DRUGS (1)
  1. ZANTAC [Suspect]
     Active Substance: RANITIDINE HYDROCHLORIDE
     Indication: DYSPEPSIA
     Dosage: 150 MG, QD
     Dates: start: 199206, end: 201709

REACTIONS (5)
  - Bladder cancer stage III [Fatal]
  - Lung carcinoma cell type unspecified stage III [Fatal]
  - Pancreatic carcinoma stage III [Fatal]
  - Skin cancer [Fatal]
  - Renal cancer stage III [Fatal]

NARRATIVE: CASE EVENT DATE: 20071201
